FAERS Safety Report 10678237 (Version 3)
Quarter: 2015Q1

REPORT INFORMATION
  Report Type: Report from Study
  Country: TR (occurrence: TR)
  Receive Date: 20141229
  Receipt Date: 20150205
  Transmission Date: 20150720
  Serious: Yes (Other)
  Sender: FDA-Public Use
  Company Number: PHHY2014TR166011

PATIENT
  Age: 34 Year
  Sex: Female
  Weight: 50 kg

DRUGS (2)
  1. EXJADE [Suspect]
     Active Substance: DEFERASIROX
     Dosage: UNK
     Route: 048
  2. EXJADE [Suspect]
     Active Substance: DEFERASIROX
     Indication: THALASSAEMIA BETA
     Dosage: 1000 MG
     Route: 048
     Dates: start: 2011, end: 20141205

REACTIONS (1)
  - Cholecystitis [Recovered/Resolved]

NARRATIVE: CASE EVENT DATE: 20141105
